FAERS Safety Report 6855760-7 (Version None)
Quarter: 2010Q3

REPORT INFORMATION
  Report Type: 
  Country: None (occurrence: None)
  Receive Date: 20100719
  Receipt Date: 20100708
  Transmission Date: 20110219
  Serious: Yes (Other)
  Sender: FDA-Public Use
  Company Number: US-ELI_LILLY_AND_COMPANY-US201007002307

PATIENT
  Sex: Male

DRUGS (7)
  1. HUMATROPE [Suspect]
     Indication: HYPOPITUITARISM
     Dosage: UNK, UNK
     Dates: start: 19970101
  2. BETA BLOCKING AGENTS [Concomitant]
  3. TIMOLOL MALEATE [Concomitant]
  4. PREDNISONE [Concomitant]
  5. THYROID TAB [Concomitant]
  6. ASPIRIN [Concomitant]
     Dosage: 3 D/F, WEEKLY (1/W)
  7. TESTOSTERONE [Concomitant]
     Dosage: UNK, WEEKLY (1/W)

REACTIONS (3)
  - HEART RATE DECREASED [None]
  - HYPONATRAEMIA [None]
  - SINUS ARREST [None]
